FAERS Safety Report 8619505-2 (Version None)
Quarter: 2012Q3

REPORT INFORMATION
  Report Type: 
  Country: None (occurrence: None)
  Receive Date: 20120824
  Receipt Date: 20120329
  Transmission Date: 20120928
  Serious: No
  Sender: FDA-Public Use
  Company Number: US-ASTRAZENECA-2012SE21124

PATIENT
  Age: 59 Year
  Sex: Male

DRUGS (1)
  1. SYMBICORT [Suspect]
     Indication: BRONCHIAL DISORDER
     Dosage: 160/4.5 TWO TIMES A DAY
     Route: 055

REACTIONS (3)
  - CONDITION AGGRAVATED [None]
  - DISCOMFORT [None]
  - DRUG INEFFECTIVE [None]
